FAERS Safety Report 4405943-0 (Version None)
Quarter: 2004Q3

REPORT INFORMATION
  Report Type: 
  Country: None (occurrence: None)
  Receive Date: 20040723
  Receipt Date: 20040212
  Transmission Date: 20050211
  Serious: No
  Sender: FDA-Public Use
  Company Number: US-GLAXOSMITHKLINE-A0497987A

PATIENT
  Age: 68 Year
  Sex: Male

DRUGS (8)
  1. AVANDIA [Suspect]
     Dosage: 8MG PER DAY
     Route: 048
  2. LASIX [Concomitant]
  3. GLUCOPHAGE [Concomitant]
  4. TOPROL-XL [Concomitant]
  5. PLAVIX [Concomitant]
  6. NEXIUM [Concomitant]
  7. COZAAR [Concomitant]
  8. MULTIVITAMIN [Concomitant]

REACTIONS (2)
  - DYSPNOEA [None]
  - SWELLING [None]
